FAERS Safety Report 25920601 (Version 1)
Quarter: 2025Q4

REPORT INFORMATION
  Report Type: Spontaneous
  Country: US (occurrence: US)
  Receive Date: 20251014
  Receipt Date: 20251014
  Transmission Date: 20260117
  Serious: No
  Sender: FENNEC PHARMACEUTICALS
  Company Number: US-FENNEC PHARMACEUTICALS, INC.-2025FEN00092

PATIENT
  Age: 55 Year
  Sex: Male

DRUGS (1)
  1. PEDMARK [Suspect]
     Active Substance: SODIUM THIOSULFATE
     Dosage: CYCLE# 1: 40 GRAMS (20 MG/M2)/4VIALS PER DOSE
     Route: 042
     Dates: start: 20250904

REACTIONS (7)
  - Feeling jittery [Unknown]
  - Hyperhidrosis [Unknown]
  - Cold sweat [Unknown]
  - Fatigue [Unknown]
  - Asthenia [Not Recovered/Not Resolved]
  - Off label use [Unknown]
  - Product container issue [Unknown]

NARRATIVE: CASE EVENT DATE: 20250904
